FAERS Safety Report 18479889 (Version 3)
Quarter: 2022Q2

REPORT INFORMATION
  Report Type: Spontaneous
  Country: US (occurrence: US)
  Receive Date: 20201109
  Receipt Date: 20220510
  Transmission Date: 20220720
  Serious: No
  Sender: FDA-Public Use
  Company Number: US-PFIZER INC-2018030571

PATIENT
  Age: 70 Year
  Sex: Female
  Weight: 68 kg

DRUGS (3)
  1. XELJANZ [Suspect]
     Active Substance: TOFACITINIB CITRATE
     Indication: Rheumatoid arthritis
     Dosage: 5 MG, 2X/DAY [5 MG TWICE A DAY MONDAY - THURSDAY]
     Route: 048
     Dates: start: 2015
  2. XELJANZ [Suspect]
     Active Substance: TOFACITINIB CITRATE
     Indication: Polymyositis
     Dosage: 5 MG, 1X/DAY [5MG ONCE A DAY FRIDAY-SUNDAY]
     Route: 048
     Dates: start: 2015
  3. IBUPROFEN [Concomitant]
     Active Substance: IBUPROFEN
     Dosage: UNK

REACTIONS (3)
  - Off label use [Unknown]
  - Product use issue [Unknown]
  - Drug hypersensitivity [Unknown]

NARRATIVE: CASE EVENT DATE: 20150101
